FAERS Safety Report 11737534 (Version 1)
Quarter: 2015Q4

REPORT INFORMATION
  Report Type: Spontaneous
  Country: US (occurrence: None)
  Receive Date: 20151112
  Receipt Date: 20151112
  Transmission Date: 20160304
  Serious: Yes (Disabling)
  Sender: FDA-Public Use
  Company Number: None

PATIENT
  Age: 53 Year
  Sex: Female
  Weight: 56.7 kg

DRUGS (6)
  1. LEVOFLOXACIN 500 MG ZYDUS [Suspect]
     Active Substance: LEVOFLOXACIN
     Indication: CYSTITIS
     Dosage: 1 PILL
     Route: 048
     Dates: start: 20151026, end: 20151101
  2. GLUCOSAMINE [Concomitant]
     Active Substance: GLUCOSAMINE
  3. FISH OIL [Concomitant]
     Active Substance: FISH OIL
  4. MULTI VITAMIN [Concomitant]
     Active Substance: VITAMINS
  5. TREXIMET [Concomitant]
     Active Substance: NAPROXEN SODIUM\SUMATRIPTAN SUCCINATE
  6. LEVOFLOXACIN 500 MG ZYDUS [Suspect]
     Active Substance: LEVOFLOXACIN
     Indication: SEPSIS
     Dosage: 1 PILL
     Route: 048
     Dates: start: 20151026, end: 20151101

REACTIONS (6)
  - Musculoskeletal pain [None]
  - Arthralgia [None]
  - Pain in extremity [None]
  - Gait disturbance [None]
  - Neck pain [None]
  - Sleep disorder [None]

NARRATIVE: CASE EVENT DATE: 20151110
